FAERS Safety Report 14991865 (Version 1)
Quarter: 2018Q2

REPORT INFORMATION
  Report Type: Spontaneous
  Country: US (occurrence: US)
  Receive Date: 20180608
  Receipt Date: 20180608
  Transmission Date: 20180711
  Serious: Yes (Death, Hospitalization)
  Sender: FDA-Public Use
  Company Number: US-ACTELION-A-NJ2018-171117

PATIENT
  Age: 23 Year
  Sex: Female

DRUGS (3)
  1. VELETRI [Suspect]
     Active Substance: EPOPROSTENOL
     Dosage: 44 NG/KG, PER MIN
     Route: 042
     Dates: start: 20180405
  2. VELETRI [Suspect]
     Active Substance: EPOPROSTENOL
     Indication: PULMONARY ARTERIAL HYPERTENSION
     Dosage: 45 NG/KG, PER MIN
     Route: 042
     Dates: start: 201803
  3. ADCIRCA [Concomitant]
     Active Substance: TADALAFIL

REACTIONS (11)
  - Cardiac output decreased [Fatal]
  - Pulmonary arterial hypertension [Fatal]
  - Ascites [Fatal]
  - Headache [Unknown]
  - Right ventricular failure [Fatal]
  - Cellulitis [Fatal]
  - Oedema [Unknown]
  - Anxiety [Unknown]
  - Hypotension [Fatal]
  - Diarrhoea [Unknown]
  - Nausea [Unknown]

NARRATIVE: CASE EVENT DATE: 20180418
